FAERS Safety Report 8833001 (Version 2)
Quarter: 2012Q4

REPORT INFORMATION
  Report Type: 
  Country: US (occurrence: US)
  Receive Date: 20121010
  Receipt Date: 20121101
  Transmission Date: 20130627
  Serious: Yes (Death)
  Sender: FDA-Public Use
  Company Number: US-ACTELION-A-US2012-72524

PATIENT
  Age: 86 Year
  Sex: Male

DRUGS (2)
  1. VENTAVIS [Suspect]
     Indication: PULMONARY ARTERIAL HYPERTENSION
     Dosage: 2.5 UNK, UNK
     Route: 055
     Dates: start: 20121001, end: 20121005
  2. ADCIRCA [Concomitant]

REACTIONS (3)
  - Death [Fatal]
  - Muscular weakness [Recovering/Resolving]
  - Hypotension [Recovering/Resolving]
